FAERS Safety Report 7356188-6 (Version None)
Quarter: 2011Q1

REPORT INFORMATION
  Report Type: 
  Country: None (occurrence: None)
  Receive Date: 20110316
  Receipt Date: 20110309
  Transmission Date: 20110831
  Serious: Yes (Death)
  Sender: FDA-Public Use
  Company Number: US-PFIZER INC-2011056846

PATIENT
  Sex: Male

DRUGS (1)
  1. CHAPSTICK LIP BALM [Suspect]
     Dosage: UNK

REACTIONS (2)
  - DEATH [None]
  - DEPENDENCE [None]
